FAERS Safety Report 5626530-2 (Version None)
Quarter: 2008Q1

REPORT INFORMATION
  Report Type: 
  Country: None (occurrence: None)
  Receive Date: 20080214
  Receipt Date: 20080207
  Transmission Date: 20080703
  Serious: Yes (Other)
  Sender: FDA-Public Use
  Company Number: PHFR2008GB00662

PATIENT
  Sex: Male

DRUGS (2)
  1. ZOMETA [Suspect]
     Indication: METASTASES TO BONE
     Dosage: MONTHLY
  2. STRONTIUM RANELATE [Concomitant]

REACTIONS (4)
  - OSTEONECROSIS [None]
  - SPINAL FRACTURE [None]
  - TOOTH DISORDER [None]
  - TOOTH EXTRACTION [None]
